FAERS Safety Report 24356430 (Version 1)
Quarter: 2024Q3

REPORT INFORMATION
  Report Type: Report from Study
  Country: US (occurrence: US)
  Receive Date: 20240924
  Receipt Date: 20240924
  Transmission Date: 20241017
  Serious: Yes (Other)
  Sender: TAKEDA
  Company Number: US-TAKEDA-2024TUS092375

PATIENT
  Sex: Male

DRUGS (1)
  1. VEDOLIZUMAB [Suspect]
     Active Substance: VEDOLIZUMAB
     Indication: Crohn^s disease
     Dosage: UNK
     Route: 042

REACTIONS (5)
  - Appendicectomy [Unknown]
  - Hereditary motor and sensory neuropathy [Unknown]
  - Migraine [Unknown]
  - Pilonidal disease [Unknown]
  - Vitamin B12 deficiency [Unknown]
